FAERS Safety Report 21212934 (Version 4)
Quarter: 2022Q4

REPORT INFORMATION
  Report Type: Report from Study
  Country: US (occurrence: US)
  Receive Date: 20220815
  Receipt Date: 20221102
  Transmission Date: 20230112
  Serious: Yes (Other)
  Sender: FDA-Public Use
  Company Number: US-BAYER-2022A112125

PATIENT
  Age: 64 Year
  Sex: Female

DRUGS (5)
  1. STIVARGA [Suspect]
     Active Substance: REGORAFENIB
     Indication: Colorectal cancer
     Dosage: 80 MG, QD DAILY FOR  1 WEEK
     Dates: start: 20220725, end: 20220731
  2. STIVARGA [Suspect]
     Active Substance: REGORAFENIB
     Indication: Colorectal cancer
     Dosage: 120 MG, QD DAILY FOR 1 WEEK
     Dates: start: 20220801, end: 20220807
  3. STIVARGA [Suspect]
     Active Substance: REGORAFENIB
     Indication: Colorectal cancer
     Dosage: 160 MG, QD DAILY FOR 21 DAYS ON THEN 7 DAYS OFF
     Route: 048
     Dates: start: 20220808, end: 202210
  4. NYSTATIN [Concomitant]
     Active Substance: NYSTATIN
     Indication: Oral candidiasis
  5. NYSTATIN [Concomitant]
     Active Substance: NYSTATIN
     Indication: Oral pain

REACTIONS (13)
  - Neuropathy peripheral [Recovered/Resolved]
  - Neuralgia [Recovered/Resolved]
  - Fatigue [Recovering/Resolving]
  - Oral candidiasis [Recovered/Resolved]
  - Oral pain [Not Recovered/Not Resolved]
  - Dysphonia [Unknown]
  - Hyperaesthesia [Unknown]
  - Off label use [None]
  - Palmar-plantar erythrodysaesthesia syndrome [Recovering/Resolving]
  - Pain of skin [Not Recovered/Not Resolved]
  - Palmoplantar keratoderma [Not Recovered/Not Resolved]
  - Asthenia [Recovering/Resolving]
  - Therapeutic product ineffective [None]

NARRATIVE: CASE EVENT DATE: 20220725
